FAERS Safety Report 10626087 (Version 1)
Quarter: 2014Q4

REPORT INFORMATION
  Report Type: Spontaneous
  Country: US (occurrence: US)
  Receive Date: 20141204
  Receipt Date: 20141204
  Transmission Date: 20150529
  Serious: Yes (Other)
  Sender: FDA-Public Use
  Company Number: US-ELI_LILLY_AND_COMPANY-US201411010815

PATIENT
  Age: 74 Year
  Sex: Female

DRUGS (2)
  1. FORTEO [Suspect]
     Active Substance: TERIPARATIDE
     Indication: OSTEOPOROSIS
     Dosage: UNK UNK, QD
     Route: 065
     Dates: start: 20140711, end: 20140714
  2. FORTEO [Suspect]
     Active Substance: TERIPARATIDE
     Dosage: UNK UNK, QD
     Route: 065
     Dates: start: 20140722

REACTIONS (2)
  - Single functional kidney [Not Recovered/Not Resolved]
  - Nausea [Recovered/Resolved]

NARRATIVE: CASE EVENT DATE: 20140711
